FAERS Safety Report 5337782-0 (Version None)
Quarter: 2007Q2

REPORT INFORMATION
  Report Type: 
  Country: None (occurrence: None)
  Receive Date: 20070308
  Receipt Date: 20070103
  Transmission Date: 20071010
  Serious: No
  Sender: FDA-Public Use
  Company Number: 2006-BP-14617BP

PATIENT
  Sex: Female

DRUGS (11)
  1. SPIRIVA [Suspect]
     Indication: CHRONIC OBSTRUCTIVE PULMONARY DISEASE
     Dosage: 18 MCG (18 MCG, 1 CAP QD), IH
     Route: 055
     Dates: start: 20060701
  2. LISINOPRIL [Concomitant]
  3. FOSAMAX [Concomitant]
  4. NEXIUM [Concomitant]
  5. VALTREX [Concomitant]
  6. ALEVE [Concomitant]
  7. ASPIRIN [Concomitant]
  8. FORADIL [Concomitant]
  9. CLONAZEPAM [Concomitant]
  10. TRAZODONE HCL [Concomitant]
  11. CALCIUM (CALCIUM) [Concomitant]

REACTIONS (2)
  - GLAUCOMA [None]
  - VISUAL ACUITY REDUCED [None]
